FAERS Safety Report 9234007 (Version 3)
Quarter: 2013Q4

REPORT INFORMATION
  Report Type: Spontaneous
  Country: FR (occurrence: FR)
  Receive Date: 20130416
  Receipt Date: 20131001
  Transmission Date: 20140711
  Serious: Yes (Hospitalization, Other)
  Sender: FDA-Public Use
  Company Number: FR-PFIZER INC-2013072729

PATIENT
  Age: 84 Year
  Sex: Female

DRUGS (8)
  1. TAHOR [Suspect]
     Dosage: 10 MG, 1X/DAY
     Route: 048
     Dates: end: 201206
  2. ATORVASTATIN EG LABO [Suspect]
     Dosage: 10 MG, 1X/DAY
     Route: 048
     Dates: start: 201206, end: 20121120
  3. GLICLAZIDE SANDOZ [Concomitant]
     Dosage: 30 MG, 3X/DAY
     Dates: start: 200902, end: 201212
  4. ESOMEPRAZOLE SANDOZ [Concomitant]
     Dosage: 20 MG, 1X/DAY
     Dates: start: 201108
  5. LEVOTHYROX [Concomitant]
     Dosage: 72 UG, 1X/DAY
  6. NEBIVOLOL EG [Concomitant]
     Dosage: 2.5 MG, 1X/DAY
     Dates: start: 201208
  7. PERINDOPRIL SANDOZ [Concomitant]
     Dosage: 10 MG, 1X/DAY
     Dates: start: 201112
  8. METFORMINE [Concomitant]
     Dosage: 850 MG, 1X/DAY

REACTIONS (6)
  - Immune-mediated necrotising myopathy [Recovered/Resolved with Sequelae]
  - Transaminases increased [Unknown]
  - Hypovitaminosis [Unknown]
  - Hypoalbuminaemia [Unknown]
  - Antibody test positive [Unknown]
  - Anti-thyroid antibody positive [Unknown]
